FAERS Safety Report 15498933 (Version 1)
Quarter: 2018Q4

REPORT INFORMATION
  Report Type: Spontaneous
  Country: US (occurrence: US)
  Receive Date: 20181005
  Receipt Date: 20181005
  Transmission Date: 20190205
  Serious: No
  Sender: FDA-Public Use
  Company Number: None

PATIENT
  Age: 34 Year
  Sex: Female
  Weight: 77.4 kg

DRUGS (5)
  1. VITAMIND 3 [Concomitant]
  2. FISH OIL [Concomitant]
     Active Substance: FISH OIL
  3. AMLOPDIPINE BESYLATE [Suspect]
     Active Substance: AMLODIPINE BESYLATE
     Indication: HYPERTENSION
  4. ATENOLOL. [Concomitant]
     Active Substance: ATENOLOL
  5. OMEGA 3 [Concomitant]
     Active Substance: OMEGA-3 FATTY ACIDS

REACTIONS (6)
  - Flushing [None]
  - Blood pressure increased [None]
  - Panic attack [None]
  - Syncope [None]
  - Dizziness [None]
  - Fear [None]

NARRATIVE: CASE EVENT DATE: 20181001
